FAERS Safety Report 5227212-1 (Version None)
Quarter: 2007Q1

REPORT INFORMATION
  Report Type: 
  Country: None (occurrence: None)
  Receive Date: 20070202
  Receipt Date: 20070125
  Transmission Date: 20070707
  Serious: Yes (Hospitalization)
  Sender: FDA-Public Use
  Company Number: JP-JPN-A200700066

PATIENT
  Age: 87 Year
  Sex: Female
  Weight: 45 kg

DRUGS (11)
  1. VALTREX [Suspect]
     Indication: HERPES ZOSTER
     Route: 048
     Dates: start: 20060915, end: 20060916
  2. TILCOTIL [Concomitant]
     Indication: RHEUMATOID ARTHRITIS
     Dosage: 20MG PER DAY
     Route: 048
     Dates: start: 20060204
  3. GASLON N [Concomitant]
     Indication: GASTRITIS
     Route: 048
     Dates: start: 20060204
  4. ONEALFA [Concomitant]
     Indication: OSTEOPOROSIS
     Route: 048
     Dates: start: 20060204
  5. CYANOCOBALAMIN [Concomitant]
     Indication: NEUROPATHY PERIPHERAL
     Dosage: 500MCG THREE TIMES PER DAY
     Route: 048
     Dates: start: 20060204
  6. LIPITOR [Concomitant]
     Dosage: 10MG PER DAY
     Route: 048
     Dates: start: 20060204
  7. PLETAL [Concomitant]
     Indication: ARTERIOSCLEROSIS
     Dosage: 100MG TWICE PER DAY
     Route: 048
     Dates: start: 20060204
  8. ASPIRIN [Concomitant]
     Indication: CEREBRAL INFARCTION
     Dosage: 100MG PER DAY
     Route: 048
     Dates: start: 20060204
  9. OLMETEC [Concomitant]
     Indication: HYPERTENSION
     Dosage: .5MG PER DAY
     Route: 048
     Dates: start: 20060204
  10. ASPARA-CA [Concomitant]
     Indication: OSTEOPOROSIS
     Route: 048
     Dates: start: 20060204
  11. PURSENNID [Concomitant]
     Indication: CONSTIPATION
     Route: 048

REACTIONS (5)
  - DECREASED APPETITE [None]
  - DIZZINESS [None]
  - MALAISE [None]
  - RENAL FAILURE ACUTE [None]
  - VOMITING [None]
